FAERS Safety Report 13434006 (Version 1)
Quarter: 2017Q2

REPORT INFORMATION
  Report Type: Spontaneous
  Country: US (occurrence: US)
  Receive Date: 20170412
  Receipt Date: 20170412
  Transmission Date: 20170830
  Serious: No
  Sender: FDA-Public Use
  Company Number: None

PATIENT

DRUGS (1)
  1. SINGULAIR [Suspect]
     Active Substance: MONTELUKAST SODIUM

REACTIONS (3)
  - Hallucination, visual [None]
  - Major depression [None]
  - Paranoia [None]

NARRATIVE: CASE EVENT DATE: 20170111
